FAERS Safety Report 7402108-5 (Version None)
Quarter: 2011Q2

REPORT INFORMATION
  Report Type: 
  Country: None (occurrence: None)
  Receive Date: 20110408
  Receipt Date: 20110325
  Transmission Date: 20111010
  Serious: Yes (Other)
  Sender: FDA-Public Use
  Company Number: BE-JNJFOC-20110401907

PATIENT

DRUGS (6)
  1. FLUOROURACIL [Suspect]
     Indication: DRUG EXPOSURE DURING PREGNANCY
     Route: 064
  2. DOXORUBICIN HYDROCHLORIDE [Suspect]
     Indication: DRUG EXPOSURE DURING PREGNANCY
     Route: 064
  3. CYCLOPHOSPHAMIDE [Suspect]
     Indication: DRUG EXPOSURE DURING PREGNANCY
     Route: 064
  4. NAVELBINE [Suspect]
     Indication: DRUG EXPOSURE DURING PREGNANCY
     Route: 064
  5. TAXANES [Suspect]
     Indication: DRUG EXPOSURE DURING PREGNANCY
     Route: 064
  6. EPIRUBICIN [Suspect]
     Indication: DRUG EXPOSURE DURING PREGNANCY
     Route: 064

REACTIONS (1)
  - RESPIRATORY DISTRESS [None]
